FAERS Safety Report 8824832 (Version 1)
Quarter: 2012Q4

REPORT INFORMATION
  Report Type: 
  Country: JP (occurrence: JP)
  Receive Date: 20121004
  Receipt Date: 20121004
  Transmission Date: 20130627
  Serious: Yes (Hospitalization)
  Sender: FDA-Public Use
  Company Number: JP-AMGEN-JPNCT2012063000

PATIENT
  Age: 54 Year
  Sex: Female
  Weight: 51 kg

DRUGS (12)
  1. DARBEPOETIN ALFA [Suspect]
     Indication: NEPHROGENIC ANAEMIA
     Dosage: 20 mug, qd
     Route: 058
     Dates: start: 20110620
  2. DARBEPOETIN ALFA [Suspect]
     Dosage: 30 mug, q4wk
     Route: 058
     Dates: start: 20110711, end: 20111031
  3. DARBEPOETIN ALFA [Suspect]
     Dosage: 40 mug, q4wk
     Route: 058
     Dates: start: 20111128, end: 20111226
  4. DARBEPOETIN ALFA [Suspect]
     Dosage: 40 mug, qd
     Route: 058
     Dates: start: 20120116, end: 20120116
  5. DARBEPOETIN ALFA [Suspect]
     Dosage: 20 mug, qd
     Route: 040
     Dates: start: 20120223, end: 20120223
  6. DARBEPOETIN ALFA [Suspect]
     Dosage: 20 mug, qd
     Route: 040
     Dates: start: 20120228, end: 20120228
  7. DARBEPOETIN ALFA [Suspect]
     Dosage: 30 mug, qd
     Route: 040
     Dates: start: 20120306, end: 20120529
  8. DARBEPOETIN ALFA [Suspect]
     Dosage: 10 mug, qwk
     Route: 040
     Dates: start: 20120605, end: 20120612
  9. NORVASC [Concomitant]
     Indication: HYPERTENSION
     Dosage: Uncertainty
     Route: 048
  10. CALTAN [Concomitant]
     Indication: HYPERTENSION
     Dosage: Uncertainty
     Route: 048
  11. CALFINA [Concomitant]
     Dosage: Uncertainty
     Route: 048
  12. FESIN [Concomitant]
     Dosage: Uncertainty
     Route: 041

REACTIONS (2)
  - Renal failure [Not Recovered/Not Resolved]
  - Hyperphosphataemia [Not Recovered/Not Resolved]
